FAERS Safety Report 18681347 (Version 1)
Quarter: 2020Q4

REPORT INFORMATION
  Report Type: Spontaneous
  Country: US (occurrence: US)
  Receive Date: 20201230
  Receipt Date: 20201230
  Transmission Date: 20210114
  Serious: No
  Sender: FDA-Public Use
  Company Number: US-HORIZON-2020HZN02835

PATIENT
  Age: 72 Year
  Sex: Male

DRUGS (1)
  1. TEPEZZA [Suspect]
     Active Substance: TEPROTUMUMAB-TRBW
     Indication: ENDOCRINE OPHTHALMOPATHY
     Dosage: Q 3 WEEKS
     Route: 050
     Dates: start: 20200701

REACTIONS (7)
  - Glycosylated haemoglobin increased [Unknown]
  - Diarrhoea [Recovering/Resolving]
  - Eyelid ptosis [Unknown]
  - Ear congestion [Unknown]
  - Fatigue [Unknown]
  - Lid sulcus deepened [Unknown]
  - Hypoacusis [Unknown]

NARRATIVE: CASE EVENT DATE: 2020
